FAERS Safety Report 13792370 (Version 1)
Quarter: 2017Q3

REPORT INFORMATION
  Report Type: Spontaneous
  Country: FR (occurrence: FR)
  Receive Date: 20170726
  Receipt Date: 20170726
  Transmission Date: 20171127
  Serious: Yes (Hospitalization)
  Sender: FDA-Public Use
  Company Number: FR-009507513-1707FRA008886

PATIENT
  Age: 76 Year
  Sex: Female

DRUGS (7)
  1. TEMERIT [Concomitant]
     Active Substance: NEBIVOLOL
     Dosage: UNK, QUARTER SCORED TABLET
     Route: 048
  2. LEVOTHYROX [Concomitant]
     Active Substance: LEVOTHYROXINE
     Dosage: UNK
     Route: 048
  3. ZEPATIER [Suspect]
     Active Substance: ELBASVIR\GRAZOPREVIR
     Indication: CHRONIC HEPATITIS C
     Dosage: 1 DF, 1 IN 1 DAY
     Route: 048
     Dates: start: 201704
  4. ASPIRINE [Concomitant]
     Active Substance: ASPIRIN
     Dosage: UNK
  5. HUMALOG [Concomitant]
     Active Substance: INSULIN LISPRO
     Dosage: UNK
  6. EXFORGE [Interacting]
     Active Substance: AMLODIPINE BESYLATE\VALSARTAN
     Indication: HYPERTENSION
     Dosage: 1 DF, 1 IN 1 DAY
     Route: 048
     Dates: end: 20170406
  7. FLUDEX [Concomitant]
     Active Substance: INDAPAMIDE
     Dosage: UNK, PROLONGED-RELEASE FILM-COATED TABLET
     Route: 048

REACTIONS (1)
  - Oedema peripheral [Recovering/Resolving]

NARRATIVE: CASE EVENT DATE: 201706
